FAERS Safety Report 9812976 (Version 1)
Quarter: 2014Q1

REPORT INFORMATION
  Report Type: Spontaneous
  Country: US (occurrence: US)
  Receive Date: 20140113
  Receipt Date: 20140113
  Transmission Date: 20141002
  Serious: No
  Sender: FDA-Public Use
  Company Number: US-TEVA-454248USA

PATIENT
  Sex: Female
  Weight: 61.29 kg

DRUGS (3)
  1. PROAIR HFA [Suspect]
     Indication: ASTHMA
  2. ADVAIR [Concomitant]
  3. ANTIBIOTICS [Concomitant]

REACTIONS (2)
  - Gingival inflammation [Not Recovered/Not Resolved]
  - Dysgeusia [Not Recovered/Not Resolved]
